FAERS Safety Report 9652111 (Version 1)
Quarter: 2013Q4

REPORT INFORMATION
  Report Type: Other
  Country: FR (occurrence: FR)
  Receive Date: 20131029
  Receipt Date: 20131029
  Transmission Date: 20140711
  Serious: Yes (Life-Threatening, Hospitalization)
  Sender: FDA-Public Use
  Company Number: FR-MPIJNJ-2013JNJ000775

PATIENT
  Sex: 0

DRUGS (7)
  1. VELCADE [Suspect]
     Indication: PRODUCT USED FOR UNKNOWN INDICATION
     Dosage: 3.5 MG, UNK
     Route: 058
     Dates: start: 20130810, end: 20130902
  2. ACICLOVIR [Suspect]
     Indication: PRODUCT USED FOR UNKNOWN INDICATION
     Dosage: 200 MG, UNK
     Route: 048
     Dates: start: 20130810, end: 20130906
  3. LASILIX                            /00032601/ [Concomitant]
  4. DUROGESIC [Concomitant]
  5. BACTRIM [Concomitant]
  6. ARANESP [Concomitant]
  7. LEXOMIL [Concomitant]

REACTIONS (2)
  - Altered state of consciousness [Recovered/Resolved]
  - Myoclonus [Recovered/Resolved]
